FAERS Safety Report 7814841-1 (Version None)
Quarter: 2011Q4

REPORT INFORMATION
  Report Type: 
  Country: None (occurrence: None)
  Receive Date: 20111014
  Receipt Date: 20110930
  Transmission Date: 20120403
  Serious: Yes (Hospitalization, Other)
  Sender: FDA-Public Use
  Company Number: JP-ROCHE-783306

PATIENT
  Sex: Female
  Weight: 43 kg

DRUGS (6)
  1. ACTEMRA [Suspect]
     Indication: RHEUMATOID ARTHRITIS
     Dosage: NOTE: DOSAGE IS UNCERTAIN
     Route: 041
     Dates: start: 20100109, end: 20110528
  2. PREDNISOLONE [Suspect]
     Indication: RHEUMATOID ARTHRITIS
     Dosage: NOTE: DOSAGE IS UNCERTAIN.
     Route: 048
  3. VFEND [Concomitant]
     Route: 048
  4. URSO 250 [Concomitant]
     Dosage: DOSAGE FORM: PERORAL AGENT
     Route: 048
  5. METHOTREXATE [Suspect]
     Indication: RHEUMATOID ARTHRITIS
     Dosage: NOTE: DOSAGE IS UNCERTAIN.
     Route: 048
  6. CELECOXIB [Concomitant]
     Route: 048

REACTIONS (5)
  - UPPER RESPIRATORY TRACT INFLAMMATION [None]
  - RHEUMATOID LUNG [None]
  - PNEUMONIA [None]
  - SEPTIC SHOCK [None]
  - SEPSIS [None]
